FAERS Safety Report 6477707-8 (Version None)
Quarter: 2009Q4

REPORT INFORMATION
  Report Type: 
  Country: None (occurrence: None)
  Receive Date: 20091207
  Receipt Date: 20091125
  Transmission Date: 20100525
  Serious: Yes (Other)
  Sender: FDA-Public Use
  Company Number: BR-PFIZER INC-2009202206

PATIENT
  Age: 30 Year
  Sex: Male
  Weight: 70 kg

DRUGS (2)
  1. SILDENAFIL CITRATE [Suspect]
     Dosage: 50 MG, EVERY 8 HRS
     Dates: start: 20050101
  2. MARCUMAR [Concomitant]
     Dosage: UNK
     Dates: start: 20050613

REACTIONS (3)
  - EYE PAIN [None]
  - GLAUCOMA [None]
  - VISUAL ACUITY REDUCED [None]
